FAERS Safety Report 17848031 (Version 2)
Quarter: 2020Q2

REPORT INFORMATION
  Report Type: Spontaneous
  Country: US (occurrence: US)
  Receive Date: 20200601
  Receipt Date: 20200611
  Transmission Date: 20200714
  Serious: No
  Sender: FDA-Public Use
  Company Number: US-009507513-2005USA005836

PATIENT
  Sex: Female

DRUGS (3)
  1. ASMANEX [Suspect]
     Active Substance: MOMETASONE FUROATE
     Dosage: ONE PUFF DAILY
     Route: 055
     Dates: start: 201912
  2. ASMANEX [Suspect]
     Active Substance: MOMETASONE FUROATE
     Dosage: INHALE ONE PUFF DAILY
     Route: 055
     Dates: start: 20200514
  3. ASMANEX [Suspect]
     Active Substance: MOMETASONE FUROATE
     Dosage: INHALE ONE PUFF DAILY
     Route: 055
     Dates: start: 20200410

REACTIONS (7)
  - Poor quality device used [Unknown]
  - Product quality issue [Unknown]
  - Poor quality device used [Unknown]
  - Product quality issue [Unknown]
  - Poor quality device used [Unknown]
  - Product quality issue [Unknown]
  - No adverse event [Unknown]

NARRATIVE: CASE EVENT DATE: 201912
